FAERS Safety Report 13164722 (Version 1)
Quarter: 2017Q1

REPORT INFORMATION
  Report Type: Report from Study
  Country: None (occurrence: US)
  Receive Date: 20170130
  Receipt Date: 20170130
  Transmission Date: 20170428
  Serious: Yes (Other)
  Sender: FDA-Public Use
  Company Number: US-ABBVIE-17P-163-1854908-00

PATIENT
  Sex: Male

DRUGS (1)
  1. HUMIRA [Suspect]
     Active Substance: ADALIMUMAB
     Indication: PRODUCT USED FOR UNKNOWN INDICATION
     Route: 058
     Dates: start: 201609

REACTIONS (5)
  - Deafness unilateral [Unknown]
  - Wound haemorrhage [Unknown]
  - Pain in extremity [Unknown]
  - Drug ineffective [Unknown]
  - Psoriasis [Unknown]
